FAERS Safety Report 6465334-8 (Version None)
Quarter: 2009Q4

REPORT INFORMATION
  Report Type: 
  Country: None (occurrence: None)
  Receive Date: 20091201
  Receipt Date: 20090202
  Transmission Date: 20100525
  Serious: No
  Sender: FDA-Public Use
  Company Number: US-AMGEN-KDL273078

PATIENT
  Sex: Male

DRUGS (2)
  1. ENBREL [Suspect]
     Indication: PSORIATIC ARTHROPATHY
     Route: 058
     Dates: start: 20030203
  2. ENBREL [Suspect]
     Indication: PSORIASIS

REACTIONS (2)
  - BLOOD PRESSURE INCREASED [None]
  - MUSCLE SPASMS [None]
